FAERS Safety Report 8862513 (Version 1)
Quarter: 2012Q4

REPORT INFORMATION
  Report Type: 
  Country: IT (occurrence: IT)
  Receive Date: 20121026
  Receipt Date: 20121026
  Transmission Date: 20130627
  Serious: Yes (Hospitalization)
  Sender: FDA-Public Use
  Company Number: IT-TEVA-365557ISR

PATIENT
  Age: 82 Year
  Sex: Female

DRUGS (4)
  1. PROPAFENONE HYDROCHLORIDE [Suspect]
     Indication: PALPITATIONS
     Dosage: 300 Milligram Daily;
     Route: 048
     Dates: start: 20120401, end: 20120804
  2. SEQUACOR [Concomitant]
     Indication: PALPITATIONS
     Dates: start: 201204
  3. LOSEC [Concomitant]
  4. ARIMEDEX [Concomitant]
     Indication: BREAST CANCER

REACTIONS (4)
  - Loss of consciousness [Unknown]
  - Vision blurred [Unknown]
  - Hyperhidrosis [Unknown]
  - Vomiting [Unknown]
